FAERS Safety Report 25386238 (Version 1)
Quarter: 2025Q2

REPORT INFORMATION
  Report Type: Spontaneous
  Country: US (occurrence: None)
  Receive Date: 20250602
  Receipt Date: 20250602
  Transmission Date: 20250716
  Serious: Yes (Hospitalization)
  Sender: FDA-CTU
  Company Number: None

PATIENT
  Age: 40 Year
  Sex: Female
  Weight: 81.9 kg

DRUGS (1)
  1. GLYCINE\SEMAGLUTIDE [Suspect]
     Active Substance: GLYCINE\SEMAGLUTIDE
     Indication: Weight decreased
     Route: 058
     Dates: start: 20250531, end: 20250531

REACTIONS (6)
  - Incorrect dose administered [None]
  - Hypotension [None]
  - Nausea [None]
  - Vomiting [None]
  - Headache [None]
  - Urinary tract infection [None]

NARRATIVE: CASE EVENT DATE: 20250531
